FAERS Safety Report 16160374 (Version 2)
Quarter: 2019Q2

REPORT INFORMATION
  Report Type: Report from Study
  Country: None (occurrence: TR)
  Receive Date: 20190404
  Receipt Date: 20190628
  Transmission Date: 20190711
  Serious: Yes (Hospitalization)
  Sender: FDA-Public Use
  Company Number: TR-ABBVIE-19S-161-2731797-00

PATIENT
  Sex: Female

DRUGS (1)
  1. DUODOPA [Suspect]
     Active Substance: CARBIDOPA\LEVODOPA
     Indication: PARKINSON^S DISEASE
     Dosage: MD (ML): 0,00 CD (ML): 2,00 ED (ML): 1,00
     Route: 050
     Dates: start: 20150729

REACTIONS (2)
  - Musculoskeletal pain [Recovering/Resolving]
  - Shoulder deformity [Recovered/Resolved]

NARRATIVE: CASE EVENT DATE: 2018
